FAERS Safety Report 24071068 (Version 1)
Quarter: 2024Q3

REPORT INFORMATION
  Report Type: Report from Study
  Country: US (occurrence: US)
  Receive Date: 20240710
  Receipt Date: 20240710
  Transmission Date: 20241016
  Serious: No
  Sender: ROCHE
  Company Number: US-ROCHE-3530770

PATIENT
  Age: 57 Year
  Sex: Female

DRUGS (22)
  1. VABYSMO [Suspect]
     Active Substance: FARICIMAB\FARICIMAB-SVOA
     Indication: Diabetic retinopathy
     Route: 065
  2. VABYSMO [Suspect]
     Active Substance: FARICIMAB\FARICIMAB-SVOA
     Indication: Macular oedema
  3. VABYSMO [Suspect]
     Active Substance: FARICIMAB\FARICIMAB-SVOA
     Indication: Retinoschisis
  4. VABYSMO [Suspect]
     Active Substance: FARICIMAB\FARICIMAB-SVOA
     Indication: Retinopathy hypertensive
  5. VABYSMO [Suspect]
     Active Substance: FARICIMAB\FARICIMAB-SVOA
     Indication: Vitreous adhesions
  6. VABYSMO [Suspect]
     Active Substance: FARICIMAB\FARICIMAB-SVOA
     Indication: Vitreous opacities
  7. VABYSMO [Suspect]
     Active Substance: FARICIMAB\FARICIMAB-SVOA
     Indication: Retinal detachment
  8. VABYSMO [Suspect]
     Active Substance: FARICIMAB\FARICIMAB-SVOA
     Indication: Obstructive sleep apnoea syndrome
  9. VABYSMO [Suspect]
     Active Substance: FARICIMAB\FARICIMAB-SVOA
     Indication: Type IIa hyperlipidaemia
  10. VABYSMO [Suspect]
     Active Substance: FARICIMAB\FARICIMAB-SVOA
     Indication: Cataract nuclear
  11. VABYSMO [Suspect]
     Active Substance: FARICIMAB\FARICIMAB-SVOA
     Indication: Retinal cyst
  12. AVASTIN [Suspect]
     Active Substance: BEVACIZUMAB
     Indication: Diabetic retinopathy
     Route: 065
  13. AVASTIN [Suspect]
     Active Substance: BEVACIZUMAB
     Indication: Macular oedema
  14. AVASTIN [Suspect]
     Active Substance: BEVACIZUMAB
     Indication: Retinoschisis
  15. AVASTIN [Suspect]
     Active Substance: BEVACIZUMAB
     Indication: Retinopathy hypertensive
  16. AVASTIN [Suspect]
     Active Substance: BEVACIZUMAB
     Indication: Vitreous adhesions
  17. AVASTIN [Suspect]
     Active Substance: BEVACIZUMAB
     Indication: Vitreous opacities
  18. AVASTIN [Suspect]
     Active Substance: BEVACIZUMAB
     Indication: Retinal detachment
  19. AVASTIN [Suspect]
     Active Substance: BEVACIZUMAB
     Indication: Obstructive sleep apnoea syndrome
  20. AVASTIN [Suspect]
     Active Substance: BEVACIZUMAB
     Indication: Type IIa hyperlipidaemia
  21. AVASTIN [Suspect]
     Active Substance: BEVACIZUMAB
     Indication: Cataract nuclear
  22. AVASTIN [Suspect]
     Active Substance: BEVACIZUMAB
     Indication: Retinal cyst

REACTIONS (2)
  - Off label use [Unknown]
  - No adverse event [Unknown]
